FAERS Safety Report 19730562 (Version 1)
Quarter: 2021Q3

REPORT INFORMATION
  Report Type: Spontaneous
  Country: US (occurrence: US)
  Receive Date: 20210821
  Receipt Date: 20210821
  Transmission Date: 20211014
  Serious: No
  Sender: FDA-Public Use
  Company Number: NVSC2021US189410

PATIENT
  Age: 60 Year
  Sex: Female

DRUGS (1)
  1. PROMACTA [Suspect]
     Active Substance: ELTROMBOPAG OLAMINE
     Indication: IMMUNISATION
     Dosage: 25 MG, QD
     Route: 048
     Dates: start: 20210722

REACTIONS (1)
  - Blood glucose [Unknown]

NARRATIVE: CASE EVENT DATE: 20210813
